FAERS Safety Report 5167715-1 (Version None)
Quarter: 2006Q4

REPORT INFORMATION
  Report Type: 
  Country: None (occurrence: None)
  Receive Date: 20061204
  Receipt Date: 20061204
  Transmission Date: 20070319
  Serious: No
  Sender: FDA-Public Use
  Company Number: None

PATIENT
  Age: 18 Year
  Sex: Female

DRUGS (1)
  1. VANCOMYCIN [Suspect]
     Indication: PREGNANCY
     Dosage: 1 GRAM  Q12H  IV
     Route: 042
     Dates: start: 20061111, end: 20061111

REACTIONS (2)
  - LIP SWELLING [None]
  - PRURITUS [None]
